FAERS Safety Report 4535176-9 (Version None)
Quarter: 2004Q4

REPORT INFORMATION
  Report Type: 
  Country: None (occurrence: None)
  Receive Date: 20041222
  Receipt Date: 20041109
  Transmission Date: 20050328
  Serious: No
  Sender: FDA-Public Use
  Company Number: US-BRISTOL-MYERS SQUIBB COMPANY-12762399

PATIENT
  Sex: Male

DRUGS (1)
  1. DOVONEX [Suspect]
     Indication: PSORIASIS

REACTIONS (1)
  - PSORIASIS [None]
